FAERS Safety Report 13273550 (Version 1)
Quarter: 2017Q1

REPORT INFORMATION
  Report Type: Spontaneous
  Country: FR (occurrence: FR)
  Receive Date: 20170227
  Receipt Date: 20170227
  Transmission Date: 20170428
  Serious: Yes (Hospitalization)
  Sender: FDA-Public Use
  Company Number: FR-PFIZER INC-2017080207

PATIENT
  Age: 76 Year
  Sex: Male

DRUGS (10)
  1. GLIVEC [Suspect]
     Active Substance: IMATINIB MESYLATE
     Dosage: 300 MG, DAILY
     Route: 048
     Dates: start: 20161219
  2. KARDEGIC [Suspect]
     Active Substance: ASPIRIN LYSINE
     Indication: INFARCTION
     Dosage: 160 MG, 1X/DAY
     Route: 048
     Dates: start: 2004
  3. GLIVEC [Suspect]
     Active Substance: IMATINIB MESYLATE
     Indication: CHRONIC MYELOID LEUKAEMIA
     Dosage: 400 MG, 1X/DAY
     Route: 048
     Dates: start: 20040401, end: 20140728
  4. GLIVEC [Suspect]
     Active Substance: IMATINIB MESYLATE
     Dosage: 400 MG, 1X/DAY
     Route: 048
     Dates: start: 20141118, end: 20161219
  5. BIPRETERAX /06377001/ [Suspect]
     Active Substance: INDAPAMIDE\PERINDOPRIL
     Indication: HYPERTENSION
     Dosage: 1 DF OF 5/1.25 MG, 1X/DAY
     Route: 048
     Dates: start: 201104
  6. STABLON [Suspect]
     Active Substance: TIANEPTINE
     Dosage: 25 MG, 1X/DAY
     Route: 048
     Dates: start: 201403
  7. LYRICA [Suspect]
     Active Substance: PREGABALIN
     Indication: NEURALGIA
     Dosage: 150 MG, 1X/DAY
     Route: 048
     Dates: start: 201108
  8. INEXIUM /01479302/ [Suspect]
     Active Substance: ESOMEPRAZOLE MAGNESIUM
     Indication: ULCER
     Dosage: 40 MG, 1X/DAY
     Route: 048
     Dates: start: 2006
  9. LASILIX FAIBLE [Suspect]
     Active Substance: FUROSEMIDE
     Dosage: 20 MG, 1X/DAY
     Route: 048
  10. MAGNE B6 /00869101/ [Concomitant]

REACTIONS (3)
  - Lymphangiosis carcinomatosa [Not Recovered/Not Resolved]
  - Bladder cancer [Recovered/Resolved]
  - Neuroendocrine carcinoma [Not Recovered/Not Resolved]

NARRATIVE: CASE EVENT DATE: 201510
